FAERS Safety Report 4828828-4 (Version None)
Quarter: 2005Q4

REPORT INFORMATION
  Report Type: 
  Country: None (occurrence: None)
  Receive Date: 20051014
  Receipt Date: 20050622
  Transmission Date: 20060501
  Serious: No
  Sender: FDA-Public Use
  Company Number: 2005SP001248

PATIENT
  Age: 62 Year
  Sex: Female

DRUGS (12)
  1. LUNESTA [Suspect]
     Dosage: 2 MG; HS; ORAL; SEE IMAGE
     Route: 048
     Dates: start: 20050501, end: 20050501
  2. LEVOXYL [Concomitant]
  3. ALLEGRA [Concomitant]
  4. LIPITOR [Concomitant]
  5. FLOVENT [Concomitant]
  6. TRAMADOL HCL [Concomitant]
  7. RANITIDINE [Concomitant]
  8. GLUCOSAMINE W/CHONDROITIN [Concomitant]
  9. CALCIUM GLUCONATE [Concomitant]
  10. MAGNESIUM CITRATE [Concomitant]
  11. VITAMIN E [Concomitant]
  12. VITAMIN B6 [Concomitant]

REACTIONS (3)
  - DRUG INEFFECTIVE [None]
  - DYSGEUSIA [None]
  - INSOMNIA [None]
